FAERS Safety Report 7811467-0 (Version None)
Quarter: 2011Q4

REPORT INFORMATION
  Report Type: 
  Country: None (occurrence: None)
  Receive Date: 20111013
  Receipt Date: 20111006
  Transmission Date: 20120403
  Serious: Yes (Hospitalization)
  Sender: FDA-Public Use
  Company Number: JP-JNJFOC-20110911708

PATIENT
  Sex: Male
  Weight: 55.6 kg

DRUGS (10)
  1. OXYCONTIN [Concomitant]
     Dosage: TWICE DAILY
     Route: 048
     Dates: start: 20110815
  2. LOXONIN [Concomitant]
     Indication: CANCER PAIN
     Dosage: THREE TIMES DAILY
     Route: 048
  3. GABAPENTIN [Concomitant]
     Indication: CANCER PAIN
     Dosage: THREE TIMES DAILY
     Route: 048
  4. OXYCONTIN [Concomitant]
     Indication: CANCER PAIN
     Dosage: TWICE DAILY
     Route: 048
  5. OXYCONTIN [Concomitant]
     Dosage: TWICE DAILY
     Route: 048
     Dates: start: 20110830
  6. LANSOPRAZOLE [Concomitant]
     Dosage: THREE TIMES DAILY
     Route: 048
  7. PROCHLORPERAZINE [Concomitant]
     Indication: VOMITING
     Dosage: THREE TIMES DAILY
     Route: 048
  8. TAPENTADOL HYDROCHLORIDE [Suspect]
     Indication: CANCER PAIN
     Dosage: TWICE A DAY
     Route: 048
     Dates: start: 20110916, end: 20110922
  9. OXYCODONE HCL [Suspect]
     Indication: PRODUCT USED FOR UNKNOWN INDICATION
     Route: 065
  10. DEPAS [Concomitant]
     Indication: INSOMNIA
     Dosage: THREE TIMES DAILY
     Route: 048

REACTIONS (1)
  - DYSKINESIA [None]
